FAERS Safety Report 5372026-5 (Version None)
Quarter: 2007Q2

REPORT INFORMATION
  Report Type: 
  Country: None (occurrence: None)
  Receive Date: 20070627
  Receipt Date: 20070626
  Transmission Date: 20071010
  Serious: Yes (Hospitalization)
  Sender: FDA-Public Use
  Company Number: CN-BAYER-200711486GDS

PATIENT
  Age: 62 Year
  Sex: Male
  Weight: 70 kg

DRUGS (1)
  1. SORAFENIB [Suspect]
     Indication: HEPATIC NEOPLASM MALIGNANT
     Dosage: TOTAL DAILY DOSE: 800 MG
     Route: 048
     Dates: start: 20051228

REACTIONS (1)
  - CEREBRAL ARTERY EMBOLISM [None]
